FAERS Safety Report 14373874 (Version 2)
Quarter: 2020Q4

REPORT INFORMATION
  Report Type: Spontaneous
  Country: DE (occurrence: DE)
  Receive Date: 20180110
  Receipt Date: 20201204
  Transmission Date: 20210113
  Serious: Yes (Other)
  Sender: FDA-Public Use
  Company Number: DE-AUROBINDO-AUR-APL-2018-001771

PATIENT
  Age: 58 Year
  Sex: Female

DRUGS (4)
  1. HUMIRA [Suspect]
     Active Substance: ADALIMUMAB
     Indication: HIDRADENITIS
     Dosage: 40 MILLIGRAM
     Route: 058
     Dates: start: 2016
  2. EBASTEL [Suspect]
     Active Substance: EBASTINE
     Indication: HYPERTENSION
     Dosage: UNK
     Route: 065
     Dates: start: 2016, end: 2016
  3. RAMIPRIL. [Suspect]
     Active Substance: RAMIPRIL
     Indication: HYPERTENSION
     Dosage: UNK
     Route: 048
     Dates: start: 2016, end: 2016
  4. RAMIPRIL. [Suspect]
     Active Substance: RAMIPRIL
     Dosage: UNK
     Route: 048
     Dates: start: 201711

REACTIONS (9)
  - Diarrhoea [Recovering/Resolving]
  - Tooth extraction [Unknown]
  - Congenital infection [Not Recovered/Not Resolved]
  - Pulpitis dental [Unknown]
  - Pruritus [Recovering/Resolving]
  - Hypertension [Unknown]
  - Pain in extremity [Recovering/Resolving]
  - Nasopharyngitis [Not Recovered/Not Resolved]
  - Infection [Not Recovered/Not Resolved]

NARRATIVE: CASE EVENT DATE: 2016
